FAERS Safety Report 6385983-5 (Version None)
Quarter: 2009Q4

REPORT INFORMATION
  Report Type: 
  Country: None (occurrence: None)
  Receive Date: 20091002
  Receipt Date: 20090206
  Transmission Date: 20100525
  Serious: No
  Sender: FDA-Public Use
  Company Number: US-ASTRAZENECA-2009UW03538

PATIENT
  Age: 810 Month
  Sex: Female
  Weight: 59 kg

DRUGS (5)
  1. ARIMIDEX [Suspect]
     Indication: BREAST CANCER STAGE II
     Route: 048
     Dates: start: 20081001
  2. ARIMIDEX [Suspect]
     Route: 048
     Dates: start: 20060601
  3. IRON [Concomitant]
     Indication: ANAEMIA
  4. SINGULAIR [Concomitant]
     Indication: ASTHMA
  5. AXID [Concomitant]
     Indication: HIATUS HERNIA

REACTIONS (6)
  - BONE PAIN [None]
  - COGNITIVE DISORDER [None]
  - DISTURBANCE IN ATTENTION [None]
  - MUSCLE SPASMS [None]
  - NAUSEA [None]
  - SOMNOLENCE [None]
